FAERS Safety Report 4425126-8 (Version None)
Quarter: 2004Q3

REPORT INFORMATION
  Report Type: 
  Country: None (occurrence: None)
  Receive Date: 20040811
  Receipt Date: 20040811
  Transmission Date: 20050211
  Serious: Yes (Hospitalization)
  Sender: FDA-Public Use
  Company Number: None

PATIENT
  Age: 61 Year
  Sex: Male
  Weight: 72 kg

DRUGS (2)
  1. VICODIN [Suspect]
     Indication: BACK PAIN
     Dosage: 1-2 TABLET Q4 H PRN PA ORAL
     Route: 048
     Dates: start: 20040309, end: 20040329
  2. METHAONE [Suspect]
     Dosage: 1 TABLET Q8H FOR PA ORAL
     Route: 048
     Dates: start: 20040309, end: 20040329

REACTIONS (1)
  - ILEUS PARALYTIC [None]
